FAERS Safety Report 5365650-7 (Version None)
Quarter: 2007Q2

REPORT INFORMATION
  Report Type: 
  Country: None (occurrence: None)
  Receive Date: 20070621
  Receipt Date: 20070613
  Transmission Date: 20071010
  Serious: Yes (Death, Hospitalization, Disabling)
  Sender: FDA-Public Use
  Company Number: DK-AMGEN-US171161

PATIENT
  Sex: Male
  Weight: 80 kg

DRUGS (5)
  1. ENBREL [Suspect]
     Indication: RHEUMATOID ARTHRITIS
     Route: 058
     Dates: start: 20050905, end: 20051204
  2. ENBREL [Suspect]
     Dates: start: 20051228, end: 20060208
  3. METHOTREXATE [Suspect]
     Indication: RHEUMATOID ARTHRITIS
     Dosage: 15 MG PER WEEK
     Dates: start: 20040101, end: 20051227
  4. METHOTREXATE [Suspect]
     Dosage: 20 MG PER WEEK
     Dates: start: 20051228, end: 20060208
  5. SOLU-MEDROL [Concomitant]
     Dosage: 750 MG ON THREE SEPARATE OCCASIONS
     Route: 042
     Dates: start: 20060522, end: 20060526

REACTIONS (8)
  - ASCITES [None]
  - CARDIAC ARREST [None]
  - DYSPNOEA [None]
  - FLUID RETENTION [None]
  - GASTRIC ULCER HAEMORRHAGE [None]
  - OEDEMA PERIPHERAL [None]
  - PERICARDIAL EFFUSION [None]
  - PLEURAL EFFUSION [None]
